FAERS Safety Report 16349625 (Version 2)
Quarter: 2019Q3

REPORT INFORMATION
  Report Type: Spontaneous
  Country: US (occurrence: US)
  Receive Date: 20190523
  Receipt Date: 20190702
  Transmission Date: 20191004
  Serious: Yes (Other)
  Sender: FDA-Public Use
  Company Number: US-TEVA-2019-US-1052774

PATIENT
  Age: 5 Year
  Sex: Female

DRUGS (14)
  1. CISPLATIN. [Suspect]
     Active Substance: CISPLATIN
     Indication: CEREBELLAR TUMOUR
     Dosage: PART OF THE HEAD START IV PROTOCOL
     Route: 065
  2. CISPLATIN. [Suspect]
     Active Substance: CISPLATIN
     Indication: METASTASES TO SPINE
  3. CYCLOPHOSPHAMIDE. [Suspect]
     Active Substance: CYCLOPHOSPHAMIDE
     Indication: CEREBELLAR TUMOUR
     Dosage: PART OF THE HEAD START IV PROTOCOL
     Route: 065
  4. THIOTEPA. [Suspect]
     Active Substance: THIOTEPA
     Indication: METASTASES TO SPINE
  5. VINCRISTINE [Suspect]
     Active Substance: VINCRISTINE
     Indication: METASTASES TO SPINE
  6. CARBOPLATIN. [Suspect]
     Active Substance: CARBOPLATIN
     Indication: METASTASES TO SPINE
  7. CYCLOPHOSPHAMIDE. [Suspect]
     Active Substance: CYCLOPHOSPHAMIDE
     Indication: METASTASES TO SPINE
  8. VINCRISTINE [Suspect]
     Active Substance: VINCRISTINE
     Indication: CEREBELLAR TUMOUR
     Dosage: PART OF THE HEAD START IV PROTOCOL
     Route: 065
  9. METHOTREXATE. [Suspect]
     Active Substance: METHOTREXATE
     Indication: CEREBELLAR TUMOUR
     Dosage: PART OF THE HEAD START IV PROTOCOL- HIGH DOSE
     Route: 065
  10. METHOTREXATE. [Suspect]
     Active Substance: METHOTREXATE
     Indication: METASTASES TO SPINE
  11. ETOPOSIDE. [Suspect]
     Active Substance: ETOPOSIDE
     Indication: METASTASES TO SPINE
  12. CARBOPLATIN. [Suspect]
     Active Substance: CARBOPLATIN
     Indication: CEREBELLAR TUMOUR
     Dosage: PART OF THE HEAD START IV PROTOCOL
     Route: 065
  13. ETOPOSIDE. [Suspect]
     Active Substance: ETOPOSIDE
     Indication: CEREBELLAR TUMOUR
     Dosage: PART OF THE HEAD START IV PROTOCOL
     Route: 065
  14. THIOTEPA. [Suspect]
     Active Substance: THIOTEPA
     Indication: CEREBELLAR TUMOUR
     Dosage: PART OF THE HEAD START IV PROTOCOL
     Route: 065

REACTIONS (1)
  - Venoocclusive liver disease [Unknown]
